FAERS Safety Report 25250703 (Version 1)
Quarter: 2025Q2

REPORT INFORMATION
  Report Type: Report from Study
  Country: PK (occurrence: PK)
  Receive Date: 20250429
  Receipt Date: 20250429
  Transmission Date: 20250717
  Serious: Yes (Death)
  Sender: NOVARTIS
  Company Number: PK-002147023-NVSC2025PK068930

PATIENT
  Sex: Male

DRUGS (2)
  1. CYCLOSPORINE [Suspect]
     Active Substance: CYCLOSPORINE
     Indication: Transplant
     Dosage: 6 DOSAGE FORM, QD
     Route: 048
     Dates: start: 20190718, end: 2022
  2. CYCLOSPORINE [Suspect]
     Active Substance: CYCLOSPORINE
     Dosage: 6 DOSAGE FORM, QD
     Route: 048
     Dates: start: 2022, end: 2024

REACTIONS (1)
  - Death [Fatal]
